FAERS Safety Report 8023619-8 (Version None)
Quarter: 2012Q1

REPORT INFORMATION
  Report Type: 
  Country: None (occurrence: None)
  Receive Date: 20120104
  Receipt Date: 20120104
  Transmission Date: 20120608
  Serious: Yes (Other)
  Sender: FDA-Public Use
  Company Number: None

PATIENT
  Sex: Female
  Weight: 50.4 kg

DRUGS (2)
  1. TOPIRAMATE [Suspect]
     Indication: ENCEPHALOPATHY
     Dosage: 50M BID PO PRIOR TO 09/18/2009
     Route: 048
  2. TOPIRAMATE [Suspect]
     Indication: CONVULSION
     Dosage: 100M BID PO PRIOR TO 09/18/2009
     Route: 048

REACTIONS (3)
  - PRODUCT SUBSTITUTION ISSUE [None]
  - CONDITION AGGRAVATED [None]
  - CONVULSION [None]
